FAERS Safety Report 16513713 (Version 2)
Quarter: 2019Q3

REPORT INFORMATION
  Report Type: Spontaneous
  Country: JP (occurrence: JP)
  Receive Date: 20190702
  Receipt Date: 20190703
  Transmission Date: 20191004
  Serious: Yes (Death, Hospitalization)
  Sender: FDA-Public Use
  Company Number: JP-ROCHE-2343832

PATIENT
  Age: 64 Year
  Sex: Male

DRUGS (3)
  1. XELODA [Suspect]
     Active Substance: CAPECITABINE
     Indication: RECTOSIGMOID CANCER
     Route: 048
  2. OXALIPLATIN. [Suspect]
     Active Substance: OXALIPLATIN
     Indication: RECTOSIGMOID CANCER
     Route: 041
  3. AVASTIN [Suspect]
     Active Substance: BEVACIZUMAB
     Indication: RECTOSIGMOID CANCER
     Route: 041

REACTIONS (8)
  - Intestinal perforation [Unknown]
  - Heart rate irregular [Unknown]
  - Stomatitis [Unknown]
  - Hypophagia [Unknown]
  - Gastrointestinal necrosis [Unknown]
  - Gastrointestinal erosion [Fatal]
  - Faeces soft [Unknown]
  - Neuropathy peripheral [Recovering/Resolving]
